FAERS Safety Report 12667271 (Version 1)
Quarter: 2016Q3

REPORT INFORMATION
  Report Type: Spontaneous
  Country: US (occurrence: None)
  Receive Date: 20160818
  Receipt Date: 20160818
  Transmission Date: 20161109
  Serious: Yes (Death)
  Sender: FDA-Public Use
  Company Number: None

PATIENT
  Age: 35 Year
  Sex: Female

DRUGS (18)
  1. ATIVAN [Concomitant]
     Active Substance: LORAZEPAM
  2. TRACLEER [Suspect]
     Active Substance: BOSENTAN
     Indication: PULMONARY ARTERIAL HYPERTENSION
     Route: 048
     Dates: start: 201412, end: 201607
  3. OMEPRAZOLE. [Concomitant]
     Active Substance: OMEPRAZOLE
  4. SPIRONOLACTONE. [Concomitant]
     Active Substance: SPIRONOLACTONE
  5. PLAQUENIL [Concomitant]
     Active Substance: HYDROXYCHLOROQUINE SULFATE
  6. ZOFRAN [Concomitant]
     Active Substance: ONDANSETRON HYDROCHLORIDE
  7. NORCO [Concomitant]
     Active Substance: ACETAMINOPHEN\HYDROCODONE BITARTRATE
  8. FERROUS GLUCONATE [Concomitant]
     Active Substance: FERROUS GLUCONATE
  9. SILDENAFIL. [Concomitant]
     Active Substance: SILDENAFIL
  10. METHOTREXATE. [Concomitant]
     Active Substance: METHOTREXATE
  11. DEPO-PROVERA [Concomitant]
     Active Substance: MEDROXYPROGESTERONE ACETATE
  12. FOLIC ACID. [Concomitant]
     Active Substance: FOLIC ACID
  13. FLONASE [Concomitant]
     Active Substance: FLUTICASONE PROPIONATE
  14. O2 [Concomitant]
  15. DIGOXIN. [Concomitant]
     Active Substance: DIGOXIN
  16. REMODULIN [Concomitant]
     Active Substance: TREPROSTINIL
  17. XIX [Concomitant]
  18. PROAIR HFA [Concomitant]
     Active Substance: ALBUTEROL SULFATE

REACTIONS (1)
  - Cardiac arrest [None]

NARRATIVE: CASE EVENT DATE: 20160726
